FAERS Safety Report 20563219 (Version 1)
Quarter: 2022Q1

REPORT INFORMATION
  Report Type: Spontaneous
  Country: US (occurrence: US)
  Receive Date: 20220308
  Receipt Date: 20220308
  Transmission Date: 20220423
  Serious: Yes (Other)
  Sender: FDA-Public Use
  Company Number: US-BIOGEN-2022BI01102301

PATIENT
  Sex: Male
  Weight: 48.351 kg

DRUGS (1)
  1. SPINRAZA [Suspect]
     Active Substance: NUSINERSEN
     Indication: Spinal muscular atrophy
     Dosage: INJECT 5 ML (12 MG) INTRATHECALLY ONCE EVERY 4 MONTHS FOR SPINAL MUSCULAR ATROPHY.
     Route: 037
     Dates: start: 2017

REACTIONS (2)
  - Scoliosis [Unknown]
  - Fall [Recovered/Resolved]
